FAERS Safety Report 4840380-6 (Version None)
Quarter: 2005Q4

REPORT INFORMATION
  Report Type: 
  Country: None (occurrence: None)
  Receive Date: 20051031
  Receipt Date: 20040915
  Transmission Date: 20060501
  Serious: Yes (Other)
  Sender: FDA-Public Use
  Company Number: PHEH2004US09914

PATIENT
  Age: 78 Year
  Sex: Female

DRUGS (3)
  1. LESCOL XL [Suspect]
     Indication: HYPERCHOLESTEROLAEMIA
     Dosage: 80 MG, QD
     Dates: start: 20040801, end: 20040810
  2. COZAAR [Concomitant]
  3. NORVASC [Concomitant]

REACTIONS (1)
  - HEPATOCELLULAR DAMAGE [None]
